FAERS Safety Report 7162453-8 (Version None)
Quarter: 2010Q4

REPORT INFORMATION
  Report Type: 
  Country: None (occurrence: None)
  Receive Date: 20101215
  Receipt Date: 20091104
  Transmission Date: 20110411
  Serious: Yes (Other)
  Sender: FDA-Public Use
  Company Number: DE-PFIZER INC-2009292776

PATIENT
  Age: 35 Year
  Sex: Male

DRUGS (2)
  1. LYRICA [Suspect]
     Indication: ANXIETY DISORDER
     Dosage: 600MG/DAY
     Route: 048
     Dates: start: 20081101
  2. SEROQUEL [Concomitant]
     Indication: SCHIZOPHRENIA
     Dosage: UNK

REACTIONS (2)
  - DRUG DEPENDENCE [None]
  - INTENTIONAL OVERDOSE [None]
